FAERS Safety Report 4263723-3 (Version None)
Quarter: 2004Q1

REPORT INFORMATION
  Report Type: 
  Country: None (occurrence: None)
  Receive Date: 20040102
  Receipt Date: 20031217
  Transmission Date: 20041129
  Serious: Yes (Death)
  Sender: FDA-Public Use
  Company Number: JP_030801622

PATIENT
  Age: 90 Year
  Sex: Male

DRUGS (4)
  1. ZYPREXA [Suspect]
     Indication: DELIRIUM
     Dosage: 2.5 MG/1 AT BEDTIME
     Dates: start: 20030812
  2. TEICOPLANIN [Concomitant]
  3. LASIX [Concomitant]
  4. TPN [Concomitant]

REACTIONS (3)
  - CARDIAC FAILURE ACUTE [None]
  - CONVULSION [None]
  - PRODUCTIVE COUGH [None]
